FAERS Safety Report 16829160 (Version 2)
Quarter: 2019Q4

REPORT INFORMATION
  Report Type: Spontaneous
  Country: US (occurrence: US)
  Receive Date: 20190919
  Receipt Date: 20191115
  Transmission Date: 20200122
  Serious: Yes (Death)
  Sender: FDA-Public Use
  Company Number: US-NAPPMUNDI-USA-2019-0148317

PATIENT
  Sex: Female
  Weight: 64.2 kg

DRUGS (1)
  1. OXYCONTIN [Suspect]
     Active Substance: OXYCODONE HYDROCHLORIDE
     Indication: PRODUCT USED FOR UNKNOWN INDICATION
     Dosage: UNK
     Route: 048

REACTIONS (4)
  - Arteriosclerosis [Fatal]
  - Overdose [Fatal]
  - Hypertensive heart disease [Fatal]
  - Drug abuse [Fatal]

NARRATIVE: CASE EVENT DATE: 20120305
